FAERS Safety Report 6771974-9 (Version None)
Quarter: 2010Q2

REPORT INFORMATION
  Report Type: 
  Country: None (occurrence: None)
  Receive Date: 20100616
  Receipt Date: 20091125
  Transmission Date: 20101027
  Serious: No
  Sender: FDA-Public Use
  Company Number: US-ASTRAZENECA-2009SE22622

PATIENT
  Age: 956 Month
  Sex: Female
  Weight: 68 kg

DRUGS (2)
  1. RHINOCORT [Suspect]
     Indication: SINUSITIS
     Route: 045
  2. IPRATROPIUM BROMIDE [Concomitant]

REACTIONS (1)
  - SINUSITIS [None]
